FAERS Safety Report 6837614-5 (Version None)
Quarter: 2010Q3

REPORT INFORMATION
  Report Type: 
  Country: None (occurrence: None)
  Receive Date: 20100713
  Receipt Date: 20070516
  Transmission Date: 20110219
  Serious: No
  Sender: FDA-Public Use
  Company Number: US-PFIZER INC-2007040530

PATIENT
  Sex: Male
  Weight: 86.8 kg

DRUGS (3)
  1. CHANTIX [Suspect]
     Indication: SMOKING CESSATION THERAPY
     Dates: start: 20070401, end: 20070101
  2. METFORMIN [Concomitant]
     Indication: DIABETES MELLITUS
  3. ANTIHYPERTENSIVES [Concomitant]

REACTIONS (5)
  - HYPERSENSITIVITY [None]
  - NERVOUSNESS [None]
  - PRURITUS [None]
  - RASH [None]
  - URTICARIA [None]
